FAERS Safety Report 12787715 (Version 1)
Quarter: 2016Q3

REPORT INFORMATION
  Report Type: Spontaneous
  Country: US (occurrence: US)
  Receive Date: 20160928
  Receipt Date: 20160928
  Transmission Date: 20161109
  Serious: No
  Sender: FDA-Public Use
  Company Number: US-GLAXOSMITHKLINE-US2016139401

PATIENT
  Age: 88 Year
  Sex: Female

DRUGS (10)
  1. IPRATROPIUM [Concomitant]
     Active Substance: IPRATROPIUM
  2. LOSARTAN. [Concomitant]
     Active Substance: LOSARTAN
  3. PEPCID [Concomitant]
     Active Substance: FAMOTIDINE
  4. CALCIUM [Concomitant]
     Active Substance: CALCIUM
  5. BUDESONIDE. [Concomitant]
     Active Substance: BUDESONIDE
  6. SOTALOL. [Concomitant]
     Active Substance: SOTALOL
  7. INCRUSE ELLIPTA [Suspect]
     Active Substance: UMECLIDINIUM BROMIDE
     Indication: LUNG INFECTION
     Dosage: 1 PUFF(S), QD
     Route: 055
     Dates: start: 20160921
  8. AMLODIPINE [Concomitant]
     Active Substance: AMLODIPINE BESYLATE
  9. FERROUS SULFATE. [Concomitant]
     Active Substance: FERROUS SULFATE
  10. WARFARIN [Concomitant]
     Active Substance: WARFARIN

REACTIONS (5)
  - Off label use [Unknown]
  - Dysphonia [Recovering/Resolving]
  - Cough [Recovering/Resolving]
  - Dyspnoea [Recovering/Resolving]
  - Device use error [Recovering/Resolving]

NARRATIVE: CASE EVENT DATE: 20160921
